FAERS Safety Report 9432223 (Version 8)
Quarter: 2017Q1

REPORT INFORMATION
  Report Type: Report from Study
  Country: BR (occurrence: BR)
  Receive Date: 20130731
  Receipt Date: 20170209
  Transmission Date: 20170429
  Serious: Yes (Hospitalization)
  Sender: FDA-Public Use
  Company Number: PHHY2013BR080452

PATIENT
  Sex: Female
  Weight: 49 kg

DRUGS (2)
  1. SANDOSTATIN LAR DEPOT [Suspect]
     Active Substance: OCTREOTIDE ACETATE
     Indication: ABDOMINAL NEOPLASM
  2. SANDOSTATIN LAR DEPOT [Suspect]
     Active Substance: OCTREOTIDE ACETATE
     Indication: NEUROENDOCRINE TUMOUR
     Dosage: 30 MG, QMO (ONCE A MONTH)
     Route: 030
     Dates: start: 201302

REACTIONS (11)
  - Hepatic neoplasm [Unknown]
  - Viral infection [Unknown]
  - Headache [Recovering/Resolving]
  - Pancreatic neoplasm [Unknown]
  - Itching scar [Not Recovered/Not Resolved]
  - Gastrointestinal neoplasm [Recovering/Resolving]
  - Abdominal pain [Unknown]
  - Memory impairment [Unknown]
  - Retching [Recovered/Resolved]
  - Flatulence [Unknown]
  - Weight decreased [Recovering/Resolving]
